FAERS Safety Report 12619217 (Version 1)
Quarter: 2016Q3

REPORT INFORMATION
  Report Type: Spontaneous
  Country: FR (occurrence: FR)
  Receive Date: 20160803
  Receipt Date: 20160803
  Transmission Date: 20161109
  Serious: Yes (Hospitalization)
  Sender: FDA-Public Use
  Company Number: FR-IMPAX LABORATORIES, INC-2016-IPXL-00812

PATIENT
  Age: 63 Year
  Sex: Male

DRUGS (2)
  1. BACLOFEN. [Suspect]
     Active Substance: BACLOFEN
     Indication: ALCOHOL WITHDRAWAL SYNDROME
     Dosage: 120 MG, DAILY
     Route: 065
  2. BACLOFEN. [Suspect]
     Active Substance: BACLOFEN
     Dosage: 60 MG, UNK
     Route: 065

REACTIONS (10)
  - Blood glucose increased [Recovered/Resolved]
  - Off label use [Unknown]
  - Hyperthermia [Unknown]
  - C-reactive protein increased [Unknown]
  - Dehydration [Unknown]
  - Vomiting [Unknown]
  - Confusional state [Recovering/Resolving]
  - Drug withdrawal syndrome [Unknown]
  - Agitation [Recovering/Resolving]
  - White blood cell count increased [Unknown]
